FAERS Safety Report 10632445 (Version 1)
Quarter: 2014Q4

REPORT INFORMATION
  Report Type: Spontaneous
  Country: US (occurrence: US)
  Receive Date: 20141205
  Receipt Date: 20141205
  Transmission Date: 20150529
  Serious: No
  Sender: FDA-Public Use
  Company Number: US-BRISTOL-MYERS SQUIBB COMPANY-21490727

PATIENT
  Age: 82 Year
  Sex: Male
  Weight: 108.39 kg

DRUGS (6)
  1. TRAMADOL [Concomitant]
     Active Substance: TRAMADOL
  2. GLYBURIDE. [Concomitant]
     Active Substance: GLYBURIDE
  3. GABAPENTIN. [Concomitant]
     Active Substance: GABAPENTIN
  4. SPRYCEL [Suspect]
     Active Substance: DASATINIB
     Indication: LEUKAEMIA
     Dates: start: 20140923
  5. ALEVE [Concomitant]
     Active Substance: NAPROXEN SODIUM
  6. AMLODIPINE [Concomitant]
     Active Substance: AMLODIPINE BESYLATE

REACTIONS (2)
  - Weight increased [Unknown]
  - Dyspnoea [Unknown]
